FAERS Safety Report 7098341-5 (Version None)
Quarter: 2010Q4

REPORT INFORMATION
  Report Type: 
  Country: None (occurrence: None)
  Receive Date: 20101112
  Receipt Date: 20101102
  Transmission Date: 20110411
  Serious: Yes (Other)
  Sender: FDA-Public Use
  Company Number: US-JNJFOC-20101102060

PATIENT
  Sex: Female
  Weight: 69.4 kg

DRUGS (4)
  1. REMICADE [Suspect]
     Indication: CROHN'S DISEASE
     Route: 042
  2. MESALAMINE [Concomitant]
     Indication: CROHN'S DISEASE
  3. ANTIDEPRESSANT [Concomitant]
  4. HUMIRA [Concomitant]

REACTIONS (1)
  - BREAST CANCER [None]
